FAERS Safety Report 7883568-2 (Version None)
Quarter: 2011Q4

REPORT INFORMATION
  Report Type: 
  Country: None (occurrence: None)
  Receive Date: 20111102
  Receipt Date: 20101011
  Transmission Date: 20120403
  Serious: No
  Sender: FDA-Public Use
  Company Number: US-BAYER-201036552NA

PATIENT
  Age: 64 Year
  Sex: Female

DRUGS (1)
  1. AVELOX [Suspect]
     Indication: INFECTION
     Dosage: 400 MG, UNK
     Route: 048
     Dates: start: 20101004, end: 20101008

REACTIONS (1)
  - ARTHRALGIA [None]
